FAERS Safety Report 5805170-6 (Version None)
Quarter: 2008Q3

REPORT INFORMATION
  Report Type: 
  Country: None (occurrence: None)
  Receive Date: 20080709
  Receipt Date: 20080707
  Transmission Date: 20090109
  Serious: Yes (Disabling)
  Sender: FDA-Public Use
  Company Number: US-MERCK-0805USA02866

PATIENT
  Age: 68 Year
  Sex: Male

DRUGS (9)
  1. TIMOPTIC [Suspect]
     Indication: GLAUCOMA
     Route: 047
     Dates: end: 20080513
  2. ALPHAGAN [Concomitant]
     Route: 065
  3. LUMIGAN [Concomitant]
     Route: 065
  4. NORVASC [Concomitant]
     Route: 065
  5. PEPCID [Concomitant]
     Route: 065
  6. GLUCOPHAGE XR [Concomitant]
     Route: 065
  7. ATACAND [Concomitant]
     Route: 065
  8. GLIPIZIDE [Concomitant]
     Route: 065
  9. COLCHICINE [Concomitant]
     Route: 065

REACTIONS (9)
  - BLINDNESS [None]
  - DEVICE MALFUNCTION [None]
  - EYE DISORDER [None]
  - EYE IRRITATION [None]
  - LACRIMATION INCREASED [None]
  - OCULAR HYPERAEMIA [None]
  - PHARMACEUTICAL PRODUCT COMPLAINT [None]
  - POOR QUALITY DRUG ADMINISTERED [None]
  - VISION BLURRED [None]
